FAERS Safety Report 6167440-4 (Version None)
Quarter: 2009Q2

REPORT INFORMATION
  Report Type: 
  Country: None (occurrence: None)
  Receive Date: 20090424
  Receipt Date: 20090417
  Transmission Date: 20091009
  Serious: Yes (Other)
  Sender: FDA-Public Use
  Company Number: PHEH2009US01512

PATIENT
  Sex: Male

DRUGS (13)
  1. ZOMETA [Suspect]
     Indication: HYPERCALCAEMIA OF MALIGNANCY
     Dosage: 4 MG, QMO
     Dates: start: 20080904, end: 20081231
  2. ZOMETA [Suspect]
     Indication: PROSTATE CANCER METASTATIC
  3. DIOVAN [Suspect]
     Indication: HYPERTENSION
     Dosage: 80 MG, QD
     Route: 048
  4. TAXOL [Concomitant]
     Indication: PROSTATE CANCER METASTATIC
  5. ANTINEOPLASTIC AGENTS [Concomitant]
     Indication: PROSTATE CANCER METASTATIC
  6. ZANTAC [Concomitant]
  7. HYDROCODONE BITARTRATE [Concomitant]
  8. KLOR-CON [Concomitant]
  9. DEXAMETHASONE [Concomitant]
  10. SIMETHICONE [Concomitant]
  11. KETOCONAZOLE [Concomitant]
  12. HYDROCHLOROTHIAZIDE [Concomitant]
  13. VITAMIN D [Concomitant]

REACTIONS (1)
  - BLOOD CALCIUM DECREASED [None]
